FAERS Safety Report 9223524 (Version 1)
Quarter: 2013Q2

REPORT INFORMATION
  Report Type: Spontaneous
  Country: CN (occurrence: CN)
  Receive Date: 20130410
  Receipt Date: 20130410
  Transmission Date: 20140414
  Serious: Yes (Other)
  Sender: FDA-Public Use
  Company Number: CN-BRISTOL-MYERS SQUIBB COMPANY-18733568

PATIENT
  Age: 42 Year
  Sex: Female

DRUGS (3)
  1. APROVEL TABS 150 MG [Suspect]
     Indication: HYPERTENSION
     Dosage: 1TAB,1/D ON SUMMMER?2/D ON WINTER
     Route: 048
     Dates: start: 201010
  2. LEVAMLODIPINE BESYLATE [Concomitant]
     Dates: start: 2009
  3. BETALOC [Concomitant]
     Dates: start: 2009, end: 2009

REACTIONS (1)
  - Hepatic fibrosis [Not Recovered/Not Resolved]
